FAERS Safety Report 21322645 (Version 2)
Quarter: 2022Q3

REPORT INFORMATION
  Report Type: Spontaneous
  Country: JP (occurrence: JP)
  Receive Date: 20220912
  Receipt Date: 20220915
  Transmission Date: 20221026
  Serious: Yes (Other)
  Sender: FDA-Public Use
  Company Number: JP-NOVARTISPH-NVSJ2022JP096957

PATIENT
  Sex: Female

DRUGS (1)
  1. NEVANAC [Suspect]
     Active Substance: NEPAFENAC
     Indication: Postoperative care
     Dosage: UNK
     Route: 047

REACTIONS (4)
  - Posterior capsule opacification [Unknown]
  - Vision blurred [Unknown]
  - Eye discharge [Unknown]
  - Incorrect product administration duration [Unknown]
